FAERS Safety Report 6980418-3 (Version None)
Quarter: 2010Q3

REPORT INFORMATION
  Report Type: 
  Country: None (occurrence: None)
  Receive Date: 20100914
  Receipt Date: 20100309
  Transmission Date: 20110219
  Serious: No
  Sender: FDA-Public Use
  Company Number: US-ABBOTT-10P-163-0630968-00

PATIENT

DRUGS (2)
  1. DEPAKOTE [Suspect]
     Indication: CONVULSION
  2. DEPAKOTE [Suspect]
     Indication: AUTISM

REACTIONS (2)
  - CORTISOL FREE URINE INCREASED [None]
  - URINE ANALYSIS ABNORMAL [None]
